FAERS Safety Report 9780982 (Version 2)
Quarter: 2013Q4

REPORT INFORMATION
  Report Type: Spontaneous
  Country: IT (occurrence: IT)
  Receive Date: 20131224
  Receipt Date: 20131224
  Transmission Date: 20140711
  Serious: Yes (Other)
  Sender: FDA-Public Use
  Company Number: IT-JNJFOC-20131206442

PATIENT
  Age: 89 Year
  Sex: Female

DRUGS (7)
  1. DUROGESIC [Suspect]
     Indication: PAIN
     Route: 062
     Dates: start: 20131119, end: 20131120
  2. MOVICOL [Concomitant]
     Indication: CONSTIPATION
     Route: 048
     Dates: start: 20120101, end: 20131120
  3. NEXIUM [Concomitant]
     Indication: PROPHYLAXIS AGAINST GASTROINTESTINAL ULCER
     Route: 048
     Dates: start: 20120101, end: 20131120
  4. ZELITREX [Concomitant]
     Indication: HERPES ZOSTER
     Route: 048
     Dates: start: 20131030, end: 20131120
  5. PROPAFENONE HYDROCHLORIDE [Concomitant]
     Indication: CORONARY ARTERY DISEASE
     Route: 048
     Dates: start: 20120101, end: 20131120
  6. NITROGLYCERIN [Concomitant]
     Indication: HYPERTENSION
     Route: 062
     Dates: start: 20120101, end: 20131120
  7. AMLODIPINE MALEATE [Concomitant]
     Indication: HYPERTENSION
     Route: 048
     Dates: start: 20120101, end: 20131120

REACTIONS (3)
  - Oxygen saturation decreased [Recovered/Resolved]
  - Sopor [Recovered/Resolved]
  - Bradypnoea [Recovered/Resolved]
